FAERS Safety Report 5888253-4 (Version None)
Quarter: 2008Q3

REPORT INFORMATION
  Report Type: 
  Country: None (occurrence: None)
  Receive Date: 20080916
  Receipt Date: 20080901
  Transmission Date: 20090109
  Serious: Yes (Other)
  Sender: FDA-Public Use
  Company Number: 1000000928

PATIENT
  Age: 4 Year

DRUGS (1)
  1. ESCITALOPRAM OXALATE [Suspect]
     Dosage: (100 MG, ONCE) ORAL
     Route: 048
     Dates: start: 20060101, end: 20060101

REACTIONS (4)
  - INTENTIONAL OVERDOSE [None]
  - POISONING [None]
  - SOMNOLENCE [None]
  - VICTIM OF CRIME [None]
